FAERS Safety Report 6442032-8 (Version None)
Quarter: 2009Q4

REPORT INFORMATION
  Report Type: 
  Country: None (occurrence: None)
  Receive Date: 20091116
  Receipt Date: 20091104
  Transmission Date: 20100525
  Serious: Yes (Other)
  Sender: FDA-Public Use
  Company Number: US-PFIZER INC-2009293784

PATIENT

DRUGS (1)
  1. GEODON [Suspect]

REACTIONS (3)
  - NEUROLEPTIC MALIGNANT SYNDROME [None]
  - NIGHT SWEATS [None]
  - PYREXIA [None]
